FAERS Safety Report 9101640 (Version 2)
Quarter: 2014Q2

REPORT INFORMATION
  Report Type: Spontaneous
  Country: FR (occurrence: FR)
  Receive Date: 20130218
  Receipt Date: 20140523
  Transmission Date: 20141212
  Serious: Yes (Other)
  Sender: FDA-Public Use
  Company Number: FR-JNJFOC-20130208021

PATIENT
  Age: 53 Year
  Sex: Female

DRUGS (4)
  1. REMICADE [Suspect]
     Indication: PSORIASIS
     Route: 042
     Dates: start: 20121119
  2. REMICADE [Suspect]
     Indication: PSORIASIS
     Route: 042
     Dates: start: 20130116
  3. REMICADE [Suspect]
     Indication: PSORIASIS
     Dosage: 35TH COURSE OF TREATMENT
     Route: 042
     Dates: start: 20131202
  4. REMICADE [Suspect]
     Indication: PSORIASIS
     Route: 042
     Dates: start: 20071031

REACTIONS (2)
  - Basal cell carcinoma [Recovered/Resolved]
  - Fibrous histiocytoma [Unknown]
